FAERS Safety Report 7339905-0 (Version None)
Quarter: 2011Q1

REPORT INFORMATION
  Report Type: 
  Country: None (occurrence: None)
  Receive Date: 20110309
  Receipt Date: 20110304
  Transmission Date: 20110831
  Serious: No
  Sender: FDA-Public Use
  Company Number: US-BAYER-2011-020589

PATIENT
  Sex: Male

DRUGS (6)
  1. AVELOX [Suspect]
     Dosage: UNK
     Dates: start: 20090101, end: 20090101
  2. SIMVASTATIN [Concomitant]
  3. AVELOX [Suspect]
     Dosage: 400 MG, QD
     Route: 048
     Dates: start: 20100101, end: 20100101
  4. AGGRENOX [Concomitant]
  5. AVELOX [Suspect]
     Indication: SINUSITIS
     Dosage: 400 MG, QD
     Route: 048
     Dates: start: 20101001
  6. LOSARTAN POTASSIUM [Concomitant]

REACTIONS (1)
  - TENDONITIS [None]
